FAERS Safety Report 17576035 (Version 1)
Quarter: 2020Q1

REPORT INFORMATION
  Report Type: Spontaneous
  Country: GB (occurrence: GB)
  Receive Date: 20200324
  Receipt Date: 20200324
  Transmission Date: 20200409
  Serious: Yes (Hospitalization)
  Sender: FDA-Public Use
  Company Number: GB-BIOGEN-2020BI00851260

PATIENT
  Age: 7 Year
  Sex: Female
  Weight: 27.1 kg

DRUGS (9)
  1. OMEPRAZOLE. [Concomitant]
     Active Substance: OMEPRAZOLE
     Indication: PRODUCT USED FOR UNKNOWN INDICATION
     Route: 065
  2. ABIDEC [Concomitant]
     Indication: PRODUCT USED FOR UNKNOWN INDICATION
     Route: 065
  3. SPINRAZA [Suspect]
     Active Substance: NUSINERSEN
     Indication: SPINAL MUSCULAR ATROPHY
     Dosage: MAINTENANCE DOSES
     Route: 037
     Dates: start: 20180102, end: 20200205
  4. MIDAZOLAM. [Suspect]
     Active Substance: MIDAZOLAM
     Indication: PROCEDURAL ANXIETY
     Dosage: 13MG ORALLY TWICE ABOUT 1 HOUR APART, THEN 7MG 2 HOURS FOLLOWING LAST DOSE
     Route: 048
     Dates: start: 20180105, end: 20200205
  5. DEXMEDETOMIDIN [Suspect]
     Active Substance: DEXMEDETOMIDINE HYDROCHLORIDE
     Indication: PROCEDURAL ANXIETY
     Route: 045
     Dates: start: 20180102, end: 20180102
  6. SALBUTAMOL [Concomitant]
     Active Substance: ALBUTEROL
     Indication: PRODUCT USED FOR UNKNOWN INDICATION
     Route: 065
  7. ENTONOX [Suspect]
     Active Substance: NITROUS OXIDE\OXYGEN
     Indication: PROCEDURAL ANXIETY
     Dosage: N2O/O2 50%
     Route: 055
     Dates: start: 20200205, end: 20200205
  8. AZITHROMYCIN ANHYDROUS. [Concomitant]
     Active Substance: AZITHROMYCIN ANHYDROUS
     Indication: PRODUCT USED FOR UNKNOWN INDICATION
     Dosage: 200MG/5ML, ON MON/WED/FRI BETWEEN SEPT-JULY
     Route: 065
  9. LACTULOSE. [Concomitant]
     Active Substance: LACTULOSE
     Indication: PRODUCT USED FOR UNKNOWN INDICATION
     Route: 065

REACTIONS (5)
  - Blood glucose decreased [Unknown]
  - Hypotonia [Unknown]
  - Nausea [Unknown]
  - Procedural vomiting [Recovered/Resolved]
  - Haematemesis [Unknown]

NARRATIVE: CASE EVENT DATE: 20180104
